FAERS Safety Report 14539807 (Version 2)
Quarter: 2018Q1

REPORT INFORMATION
  Report Type: Spontaneous
  Country: US (occurrence: US)
  Receive Date: 20180216
  Receipt Date: 20180223
  Transmission Date: 20180509
  Serious: Yes (Other)
  Sender: FDA-Public Use
  Company Number: US-HORIZON-KRY-0050-2018

PATIENT
  Age: 52 Year
  Sex: Male
  Weight: 113.4 kg

DRUGS (5)
  1. ALLANTOIN. [Suspect]
     Active Substance: ALLANTOIN
     Indication: PRODUCT USED FOR UNKNOWN INDICATION
     Dosage: LONG TERM USE
  2. LABETALOL [Concomitant]
     Active Substance: LABETALOL\LABETALOL HYDROCHLORIDE
     Indication: HYPERTENSION
  3. KRYSTEXXA [Suspect]
     Active Substance: PEGLOTICASE
     Indication: GOUTY TOPHUS
     Dosage: 8 MG EVERY 2 WEEKS
     Dates: start: 20180112
  4. MULTI-VITAMINS [Concomitant]
  5. ADDERALL [Concomitant]
     Active Substance: AMPHETAMINE ASPARTATE\AMPHETAMINE SULFATE\DEXTROAMPHETAMINE SACCHARATE\DEXTROAMPHETAMINE SULFATE
     Indication: ATTENTION DEFICIT/HYPERACTIVITY DISORDER

REACTIONS (2)
  - Renal failure [Unknown]
  - Blood uric acid increased [Unknown]
